FAERS Safety Report 8832832 (Version 2)
Quarter: 2012Q4

REPORT INFORMATION
  Report Type: 
  Country: TW (occurrence: TW)
  Receive Date: 20121010
  Receipt Date: 20121025
  Transmission Date: 20130627
  Serious: Yes (Other)
  Sender: FDA-Public Use
  Company Number: TW-AMGEN-TWNSP2012063555

PATIENT
  Age: 42 Year
  Sex: Male

DRUGS (8)
  1. ENBREL [Suspect]
     Indication: PSORIASIS
     Dosage: 1 DF, 2x/week
     Route: 058
     Dates: start: 20100115
  2. ZEFFIX [Concomitant]
     Indication: HEPATITIS B
     Dosage: 100 mg, 1x/day
     Route: 048
  3. SALAZOPYRIN [Concomitant]
     Indication: PSORIASIS
     Dosage: 500 mg, 2x/day
     Route: 048
  4. MTX                                /00113802/ [Concomitant]
     Indication: PSORIASIS
     Dosage: 10 mg, qwk
     Route: 048
  5. FOLIC ACID [Concomitant]
     Dosage: 5 mg, 1x/day
     Route: 048
  6. ETORICOXIB [Concomitant]
     Dosage: 60 mg, 1x/day
     Route: 048
  7. ESOMEPRAZOLE [Concomitant]
     Dosage: 1 tablet, 1x/day
     Route: 048
  8. MEBEVERINE [Concomitant]
     Dosage: 100 mg, 2x/day
     Route: 048

REACTIONS (5)
  - Gastric ulcer [Unknown]
  - Gastrooesophageal reflux disease [Unknown]
  - Hepatic steatosis [Unknown]
  - Abdominal pain [Recovered/Resolved]
  - Gastroenteritis [Unknown]
